FAERS Safety Report 11534975 (Version 1)
Quarter: 2015Q3

REPORT INFORMATION
  Report Type: Spontaneous
  Country: GB (occurrence: GB)
  Receive Date: 20150922
  Receipt Date: 20150922
  Transmission Date: 20151125
  Serious: Yes (Other)
  Sender: FDA-Public Use
  Company Number: GB-TEVA-593528ACC

PATIENT
  Age: 44 Year
  Sex: Male

DRUGS (4)
  1. INDOMETACIN [Concomitant]
     Active Substance: INDOMETHACIN
  2. TRAMADOL. [Concomitant]
     Active Substance: TRAMADOL
  3. ERYTHROMYCIN. [Suspect]
     Active Substance: ERYTHROMYCIN
     Dosage: 7 DAY PRESCRIPTION
     Route: 048
     Dates: start: 20150724, end: 20150726
  4. CITALOPRAM [Concomitant]
     Active Substance: CITALOPRAM HYDROBROMIDE

REACTIONS (4)
  - Fatigue [Recovered/Resolved]
  - Tremor [Recovered/Resolved]
  - Disorientation [Recovered/Resolved]
  - Asthenia [Recovered/Resolved]

NARRATIVE: CASE EVENT DATE: 20150725
